FAERS Safety Report 9334913 (Version 2)
Quarter: 2013Q3

REPORT INFORMATION
  Report Type: Spontaneous
  Country: TR (occurrence: TR)
  Receive Date: 20130606
  Receipt Date: 20130712
  Transmission Date: 20140515
  Serious: Yes (Disabling, Other)
  Sender: FDA-Public Use
  Company Number: TR-ELI_LILLY_AND_COMPANY-TR201305010004

PATIENT
  Age: 63 Year
  Sex: Female

DRUGS (1)
  1. FORSTEO [Suspect]
     Indication: OSTEOPOROTIC FRACTURE
     Dosage: 20 UG, UNK
     Route: 058
     Dates: start: 201207, end: 20130528

REACTIONS (3)
  - Fall [Recovering/Resolving]
  - Fractured ischium [Recovering/Resolving]
  - Off label use [Unknown]
